FAERS Safety Report 23795070 (Version 3)
Quarter: 2024Q2

REPORT INFORMATION
  Report Type: Report from Study
  Country: US (occurrence: US)
  Receive Date: 20240429
  Receipt Date: 20240529
  Transmission Date: 20240716
  Serious: Yes (Other)
  Sender: FDA-Public Use
  Company Number: US-AVEO PHARMACEUTICALS, INC.-2024-AVEO-US000306

PATIENT

DRUGS (12)
  1. FOTIVDA [Suspect]
     Active Substance: TIVOZANIB HYDROCHLORIDE
     Indication: Renal cell carcinoma
     Dosage: 1.34 MG, DAILY FOR 21 DAYS WITH 7 DAYS OFF (28-DAY CYCLE)
     Route: 048
     Dates: start: 20240402, end: 2024
  2. FOTIVDA [Suspect]
     Active Substance: TIVOZANIB HYDROCHLORIDE
     Dosage: 0.89 MG, DAILY FOR 21 DAYS WITH 7 DAYS OFF (28-DAY CYCLE)
     Route: 048
     Dates: start: 2024, end: 2024
  3. TAMSULOSIN [Concomitant]
     Active Substance: TAMSULOSIN
  4. PROPRANOLOL HYDROCHLORIDE [Concomitant]
     Active Substance: PROPRANOLOL HYDROCHLORIDE
  5. OXYCODONE [Concomitant]
     Active Substance: OXYCODONE\OXYCODONE HYDROCHLORIDE
  6. MORPHINE SULFATE [Concomitant]
     Active Substance: MORPHINE SULFATE
  7. LYRICA [Concomitant]
     Active Substance: PREGABALIN
  8. LOSARTAN [Concomitant]
     Active Substance: LOSARTAN
  9. LIDOCAINE [Concomitant]
     Active Substance: LIDOCAINE
     Dosage: EXTERNAL PATCH
     Route: 062
  10. HYDROCHLOROTHIAZIDE [Concomitant]
     Active Substance: HYDROCHLOROTHIAZIDE
  11. ELIQUIS [Concomitant]
     Active Substance: APIXABAN
  12. CYCLOBENZAPRINE HYDROCHLORIDE [Concomitant]
     Active Substance: CYCLOBENZAPRINE HYDROCHLORIDE

REACTIONS (13)
  - Throat tightness [Unknown]
  - Dyspnoea [Unknown]
  - Fatigue [Unknown]
  - Dysphonia [Unknown]
  - Swelling face [Unknown]
  - Hypertension [Unknown]
  - Laryngeal pain [Unknown]
  - Dizziness [Unknown]
  - Dysphagia [Unknown]
  - Somnolence [Unknown]
  - Dry skin [Unknown]
  - Alopecia [Unknown]
  - Malignant neoplasm progression [Unknown]

NARRATIVE: CASE EVENT DATE: 20240402
